FAERS Safety Report 8606373-8 (Version None)
Quarter: 2012Q3

REPORT INFORMATION
  Report Type: 
  Country: None (occurrence: None)
  Receive Date: 20120820
  Receipt Date: 20100708
  Transmission Date: 20120928
  Serious: Yes (Other)
  Sender: FDA-Public Use
  Company Number: US-ROCHE-714319

PATIENT
  Sex: Male
  Weight: 61.2 kg

DRUGS (14)
  1. ROACTEMRA [Suspect]
     Dosage: DOSE: 8 MG/KG
     Route: 042
  2. METHOTREXATE [Concomitant]
     Dosage: ROUTE: ORAL
  3. DICLOFENAC SODIUM [Concomitant]
     Dosage: AS NEEDED. TAKES RARELY.
     Route: 048
  4. ROACTEMRA [Suspect]
     Dosage: DOSE: 8 MG/KG
     Route: 042
  5. ROACTEMRA [Suspect]
     Dosage: DOSE: 8 MG/KG
     Route: 042
  6. METHOTREXATE [Concomitant]
  7. FOLIC ACID [Concomitant]
     Route: 048
  8. FOLIC ACID [Concomitant]
     Route: 048
  9. DICLOFENAC SODIUM [Concomitant]
     Indication: ARTHRITIS
     Route: 048
  10. ROACTEMRA [Suspect]
     Dosage: FORM:INFUSION.PATIENT WAS ENROLLED IN STUDY WA18063
     Route: 042
  11. PANCREATIN TRIPLE STRENGTH CAP [Concomitant]
     Dosage: DRUG: PANCREATIN ENZYME OTC
  12. METHOTREXATE [Concomitant]
     Dosage: STRENGTH: 25 MG/ML. FORM: VIAL INJ.
  13. ROACTEMRA [Suspect]
     Indication: RHEUMATOID ARTHRITIS
     Dosage: FORM: INFUSION.LAST DOSE PRIOR TO SAE:30 JUNE 2010
     Route: 042
  14. ROACTEMRA [Suspect]
     Dosage: DOSE: 8 MG/KG
     Route: 042

REACTIONS (1)
  - LUNG NEOPLASM [None]
